FAERS Safety Report 4814922-0 (Version None)
Quarter: 2005Q4

REPORT INFORMATION
  Report Type: 
  Country: None (occurrence: None)
  Receive Date: 20051028
  Receipt Date: 20051019
  Transmission Date: 20060501
  Serious: Yes (Other)
  Sender: FDA-Public Use
  Company Number: PHBS2005CH15490

PATIENT
  Age: 64 Year
  Sex: Male

DRUGS (2)
  1. CYCLOSPORINE [Suspect]
     Indication: LIVER TRANSPLANT
  2. STEROIDS NOS [Concomitant]

REACTIONS (5)
  - HAEMODIALYSIS [None]
  - HYPEROXALURIA [None]
  - METASTASES TO CHEST WALL [None]
  - RENAL FAILURE [None]
  - RENAL IMPAIRMENT [None]
